FAERS Safety Report 8806372 (Version 1)
Quarter: 2012Q4

REPORT INFORMATION
  Report Type: Spontaneous
  Country: US (occurrence: None)
  Receive Date: 20120919
  Receipt Date: 20120919
  Transmission Date: 20130627
  Serious: No
  Sender: FDA-Public Use
  Company Number: None

PATIENT

DRUGS (1)
  1. AUGMENTIN [Suspect]
     Route: 048

REACTIONS (5)
  - Liver function test abnormal [None]
  - Medication error [None]
  - Drug dispensing error [None]
  - Drug prescribing error [None]
  - Incorrect dose administered [None]
